FAERS Safety Report 13661153 (Version 1)
Quarter: 2017Q2

REPORT INFORMATION
  Report Type: Report from Study
  Country: US (occurrence: US)
  Receive Date: 20170616
  Receipt Date: 20170616
  Transmission Date: 20170830
  Serious: No
  Sender: FDA-Public Use
  Company Number: US-US WORLDMEDS, LLC-USW201703-000408

PATIENT
  Age: 73 Year
  Sex: Female
  Weight: 99.79 kg

DRUGS (5)
  1. APOKYN [Suspect]
     Active Substance: APOMORPHINE HYDROCHLORIDE
     Indication: PARKINSON^S DISEASE
     Route: 058
     Dates: start: 20170315
  2. SINEMET [Concomitant]
     Active Substance: CARBIDOPA\LEVODOPA
  3. SINEMET [Concomitant]
     Active Substance: CARBIDOPA\LEVODOPA
  4. COMTAN [Concomitant]
     Active Substance: ENTACAPONE
  5. PROVIGIL [Concomitant]
     Active Substance: MODAFINIL

REACTIONS (2)
  - Dizziness [Recovered/Resolved]
  - Hypotension [Recovered/Resolved]

NARRATIVE: CASE EVENT DATE: 20170315
